FAERS Safety Report 17027145 (Version 1)
Quarter: 2019Q4

REPORT INFORMATION
  Report Type: Spontaneous
  Country: US (occurrence: US)
  Receive Date: 20191009
  Receipt Date: 20191009
  Transmission Date: 20200122
  Serious: Yes (Hospitalization, Other)
  Sender: FDA-Public Use
  Company Number: None

PATIENT
  Age: 11 Year
  Sex: Male
  Weight: 10 kg

DRUGS (5)
  1. LACTULOSE. [Concomitant]
     Active Substance: LACTULOSE
  2. IPRATOPIUM [Concomitant]
     Active Substance: IPRATROPIUM BROMIDE
  3. ZOLGENSMA [Suspect]
     Active Substance: ONASEMNOGENE ABEPARVOVEC-XIOI
     Dosage: ?          OTHER DOSE:1.1X10E14 VG/KG;OTHER FREQUENCY:SINGLE DOSE;?
     Route: 042
  4. ALBUTEROL. [Concomitant]
     Active Substance: ALBUTEROL
  5. CARNITINE [Concomitant]
     Active Substance: CARNITINE

REACTIONS (7)
  - Rhinovirus infection [None]
  - Atelectasis [None]
  - Increased upper airway secretion [None]
  - Pneumonitis [None]
  - Respiratory distress [None]
  - Pyrexia [None]
  - Pneumonia [None]

NARRATIVE: CASE EVENT DATE: 20190930
